FAERS Safety Report 6010349-7 (Version None)
Quarter: 2008Q4

REPORT INFORMATION
  Report Type: 
  Country: None (occurrence: None)
  Receive Date: 20081218
  Receipt Date: 20081111
  Transmission Date: 20090506
  Serious: No
  Sender: FDA-Public Use
  Company Number: A0751341A

PATIENT
  Age: 26 Year
  Sex: Male

DRUGS (7)
  1. FLONASE [Suspect]
     Indication: RHINITIS
     Dosage: 1SPR TWICE PER DAY
     Route: 045
     Dates: start: 20080401
  2. EUCERIN [Suspect]
  3. BETA CAROTENE [Concomitant]
  4. MULTI-VITAMINS [Concomitant]
  5. ELIDEL [Concomitant]
  6. ALEVE [Concomitant]
  7. RETIN-A [Concomitant]

REACTIONS (9)
  - ACNE [None]
  - BACK PAIN [None]
  - BRUXISM [None]
  - DEPRESSION [None]
  - ECZEMA [None]
  - MUSCULOSKELETAL CHEST PAIN [None]
  - RASH [None]
  - SKIN DISCOLOURATION [None]
  - SWELLING FACE [None]
